FAERS Safety Report 5130390-6 (Version None)
Quarter: 2006Q4

REPORT INFORMATION
  Report Type: 
  Country: None (occurrence: None)
  Receive Date: 20061019
  Receipt Date: 20060815
  Transmission Date: 20070319
  Serious: Yes (Hospitalization)
  Sender: FDA-Public Use
  Company Number: CH-AVENTIS-200618463GDDC

PATIENT
  Age: 61 Year
  Sex: Male

DRUGS (4)
  1. TAXOTERE [Suspect]
     Indication: OESOPHAGEAL CARCINOMA
     Route: 042
     Dates: start: 20060606, end: 20060725
  2. TAXOTERE [Suspect]
  3. PLATINOL [Suspect]
     Indication: OESOPHAGEAL CARCINOMA
     Route: 042
     Dates: start: 20060606, end: 20060725
  4. RADIOTHERAPY [Suspect]
     Indication: OESOPHAGEAL CARCINOMA
     Dates: start: 20060718, end: 20060728

REACTIONS (3)
  - ARRHYTHMIA [None]
  - DYSPNOEA [None]
  - HICCUPS [None]
